FAERS Safety Report 9096893 (Version 4)
Quarter: 2013Q3

REPORT INFORMATION
  Report Type: Spontaneous
  Country: US (occurrence: None)
  Receive Date: 20130124
  Receipt Date: 20130808
  Transmission Date: 20140515
  Serious: Yes (Other)
  Sender: FDA-Public Use
  Company Number: 2013US001019

PATIENT
  Age: 40 Year
  Sex: Male

DRUGS (2)
  1. PONATINIB (AP24534) TABLET [Suspect]
     Indication: CHRONIC MYELOID LEUKAEMIA
     Route: 048
     Dates: start: 20121222, end: 20121225
  2. ALLOPURINOL [Concomitant]

REACTIONS (1)
  - Non-cardiac chest pain [None]
